FAERS Safety Report 9671689 (Version 1)
Quarter: 2013Q4

REPORT INFORMATION
  Report Type: Spontaneous
  Country: GB (occurrence: None)
  Receive Date: 20131104
  Receipt Date: 20131104
  Transmission Date: 20140711
  Serious: Yes (Other)
  Sender: FDA-Public Use
  Company Number: AUR-APL-2013-09057

PATIENT
  Age: 33 Year
  Sex: Female
  Weight: 64.86 kg

DRUGS (7)
  1. CIPROFLOXACIN (CIPROFLOXACIN) [Suspect]
     Indication: URINARY TRACT INFECTION
     Dosage: 500 MG, 2 IN 1 D
     Route: 048
     Dates: start: 20131009, end: 20131013
  2. BECLOMETASONE (BECLOMETASONE) [Concomitant]
  3. IBUPROFEN (IBUPROFEN) [Concomitant]
  4. LITHIUM (LITHIUM) [Concomitant]
  5. PARACETAMOL (PARACETAMOL) [Concomitant]
  6. TRIMETHOPRIM (TRIMETHOPRIM) [Concomitant]
  7. ST JOHNS WORT (HYPERICUM PERFORATUM) [Concomitant]

REACTIONS (7)
  - Tendon pain [None]
  - Fatigue [None]
  - Myalgia [None]
  - Palpitations [None]
  - Vision blurred [None]
  - Arthralgia [None]
  - Joint crepitation [None]
